FAERS Safety Report 13391471 (Version 1)
Quarter: 2017Q1

REPORT INFORMATION
  Report Type: Spontaneous
  Country: US (occurrence: US)
  Receive Date: 20170331
  Receipt Date: 20170331
  Transmission Date: 20170429
  Serious: No
  Sender: FDA-Public Use
  Company Number: None

PATIENT
  Age: 69 Year
  Sex: Female

DRUGS (13)
  1. SIMVASTATIN. [Concomitant]
     Active Substance: SIMVASTATIN
  2. QUETIAPINE. [Concomitant]
     Active Substance: QUETIAPINE
  3. FORTEO [Suspect]
     Active Substance: TERIPARATIDE
     Indication: OSTEOPOROSIS
     Dosage: ?          OTHER STRENGTH:MCG;QUANTITY:1 INJECTION(S);?
     Route: 058
     Dates: start: 20170306, end: 20170330
  4. SYNTHROID [Concomitant]
     Active Substance: LEVOTHYROXINE SODIUM
  5. FORTEO [Concomitant]
     Active Substance: TERIPARATIDE
  6. CURCUMIN [Concomitant]
     Active Substance: CURCUMIN
  7. LOSARTAN. [Concomitant]
     Active Substance: LOSARTAN
  8. PRIMROSE OIL [Concomitant]
  9. ASA [Concomitant]
     Active Substance: ASPIRIN
  10. FISH OIL [Concomitant]
     Active Substance: FISH OIL
  11. CLONAZEPAM. [Concomitant]
     Active Substance: CLONAZEPAM
  12. SERTRALINE [Concomitant]
     Active Substance: SERTRALINE HYDROCHLORIDE
  13. XOPENEX [Concomitant]
     Active Substance: LEVALBUTEROL HYDROCHLORIDE

REACTIONS (2)
  - Fatigue [None]
  - Pyrexia [None]

NARRATIVE: CASE EVENT DATE: 20170312
